FAERS Safety Report 8271787-5 (Version None)
Quarter: 2012Q2

REPORT INFORMATION
  Report Type: 
  Country: None (occurrence: None)
  Receive Date: 20120410
  Receipt Date: 20120405
  Transmission Date: 20120825
  Serious: Yes (Other)
  Sender: FDA-Public Use
  Company Number: GB-PFIZER INC-2012086864

PATIENT

DRUGS (1)
  1. NEURONTIN [Suspect]
     Dosage: 1200 MG, UNK

REACTIONS (1)
  - LIPOEDEMA [None]
